FAERS Safety Report 19990757 (Version 3)
Quarter: 2022Q1

REPORT INFORMATION
  Report Type: Spontaneous
  Country: US (occurrence: US)
  Receive Date: 20211025
  Receipt Date: 20220121
  Transmission Date: 20220424
  Serious: No
  Sender: FDA-Public Use
  Company Number: US-NOVARTISTESTPH-NVSC2021US241941

PATIENT

DRUGS (2)
  1. KESIMPTA [Suspect]
     Active Substance: OFATUMUMAB
     Indication: Product used for unknown indication
     Dosage: 20 MG, QMO, OTHER DOSAGE-0.4 ML
     Route: 058
     Dates: start: 20210912
  2. KESIMPTA [Suspect]
     Active Substance: OFATUMUMAB
     Dosage: UNK
     Route: 065
     Dates: start: 20211012

REACTIONS (3)
  - Peripheral swelling [Unknown]
  - Urinary tract infection [Unknown]
  - Chills [Unknown]

NARRATIVE: CASE EVENT DATE: 20210929
